FAERS Safety Report 13973631 (Version 2)
Quarter: 2019Q1

REPORT INFORMATION
  Report Type: Spontaneous
  Country: NL (occurrence: NL)
  Receive Date: 20170915
  Receipt Date: 20190329
  Transmission Date: 20190417
  Serious: Yes (Other)
  Sender: FDA-Public Use
  Company Number: NL-ELI_LILLY_AND_COMPANY-NL201709002425

PATIENT
  Sex: Male

DRUGS (1)
  1. TALTZ [Suspect]
     Active Substance: IXEKIZUMAB
     Indication: PRODUCT USED FOR UNKNOWN INDICATION
     Dosage: UNK, UNKNOWN
     Route: 065
     Dates: start: 20170411

REACTIONS (8)
  - Swollen tongue [Unknown]
  - Oesophageal disorder [Unknown]
  - Gastritis [Unknown]
  - Fungal infection [Recovering/Resolving]
  - Gastrooesophageal reflux disease [Unknown]
  - Throat irritation [Unknown]
  - Oral candidiasis [Unknown]
  - Sleep disorder [Unknown]

NARRATIVE: CASE EVENT DATE: 20170530
